FAERS Safety Report 8789532 (Version 1)
Quarter: 2012Q4

REPORT INFORMATION
  Report Type: Spontaneous
  Country: US (occurrence: None)
  Receive Date: 20120910
  Receipt Date: 20120910
  Transmission Date: 20130627
  Serious: Yes (Other)
  Sender: FDA-Public Use
  Company Number: None

PATIENT
  Sex: Female

DRUGS (1)
  1. TARGRETIN [Suspect]
     Indication: MYCOSIS FUNGOIDES INVOLVING LYMPH NODES OF MULTIPLE SITES
     Route: 048
     Dates: start: 20120213, end: 20120906

REACTIONS (3)
  - Fatigue [None]
  - Myalgia [None]
  - Abdominal discomfort [None]
